FAERS Safety Report 9572312 (Version 2)
Quarter: 2014Q1

REPORT INFORMATION
  Report Type: Report from Study
  Country: DE (occurrence: DE)
  Receive Date: 20131001
  Receipt Date: 20140217
  Transmission Date: 20141002
  Serious: Yes (Hospitalization)
  Sender: FDA-Public Use
  Company Number: PHHY2013DE107234

PATIENT
  Age: 54 Year
  Sex: Male

DRUGS (11)
  1. BASILIXIMAB [Suspect]
     Indication: RENAL TRANSPLANT
     Dosage: 20 MG, UNK
     Route: 041
     Dates: start: 20110929
  2. MYCOPHENOLATE MOFETIL [Suspect]
     Indication: RENAL TRANSPLANT
     Dosage: 2000 MG, UNK
     Route: 048
     Dates: start: 20110929
  3. MYCOPHENOLATE MOFETIL [Suspect]
     Dosage: 500 MG, BID
     Route: 048
     Dates: start: 20120221
  4. TACROLIMUS [Suspect]
     Indication: RENAL TRANSPLANT
     Dosage: 17 MG, QD
     Route: 048
     Dates: start: 20110929
  5. PREDNISONE [Suspect]
     Indication: RENAL TRANSPLANT
     Dosage: 25 MG, UNK
     Route: 048
     Dates: start: 20110929
  6. VOTUM//OLMESARTAN MEDOXOMIL [Concomitant]
     Dosage: 1 DF, QD
  7. MOXONIDIN [Concomitant]
     Dosage: 2 DF, UNK
  8. CARMEN [Concomitant]
  9. FLUVASTATIN [Concomitant]
     Dosage: 80 MG, UNK
  10. BISOPROLOL [Concomitant]
     Dosage: 5 MG, UNK
  11. COTRIM [Concomitant]
     Dosage: 480 MG, UNK

REACTIONS (10)
  - Toxicity to various agents [Unknown]
  - Blood creatinine increased [Recovered/Resolved]
  - Renal arteriosclerosis [Unknown]
  - Renal tubular necrosis [Unknown]
  - Ventricular hypertrophy [Unknown]
  - Right ventricular systolic pressure increased [Unknown]
  - Spondylolysis [Unknown]
  - Leukopenia [Unknown]
  - Diarrhoea [Recovered/Resolved]
  - Urosepsis [Recovered/Resolved]
